FAERS Safety Report 6402139-8 (Version None)
Quarter: 2009Q4

REPORT INFORMATION
  Report Type: 
  Country: None (occurrence: None)
  Receive Date: 20091014
  Receipt Date: 20091014
  Transmission Date: 20100525
  Serious: No
  Sender: FDA-Public Use
  Company Number: None

PATIENT
  Sex: Female
  Weight: 80.7403 kg

DRUGS (2)
  1. ACTONEL [Suspect]
     Indication: BREAST CANCER
     Dosage: 1 PILL EVERY SUN. EVERY WEEK AT 8AM
  2. ACTONEL [Suspect]
     Indication: OSTEOPOROSIS PROPHYLAXIS
     Dosage: 1 PILL EVERY SUN. EVERY WEEK AT 8AM

REACTIONS (1)
  - ALOPECIA [None]
